FAERS Safety Report 17023818 (Version 1)
Quarter: 2019Q4

REPORT INFORMATION
  Report Type: Spontaneous
  Country: JP (occurrence: JP)
  Receive Date: 20191113
  Receipt Date: 20191113
  Transmission Date: 20200122
  Serious: Yes (Other)
  Sender: FDA-Public Use
  Company Number: JP-BRISTOL-MYERS SQUIBB COMPANY-BMS-2018-027635

PATIENT
  Age: 69 Year
  Sex: Male

DRUGS (1)
  1. OPDIVO [Suspect]
     Active Substance: NIVOLUMAB
     Indication: GASTRIC CANCER
     Dosage: 3 MG/KG, Q2WK
     Route: 041
     Dates: start: 201801, end: 20180508

REACTIONS (5)
  - Inflammatory bowel disease [Recovering/Resolving]
  - Dermatitis psoriasiform [Recovered/Resolved]
  - Malignant neoplasm progression [Unknown]
  - Autoimmune hepatitis [Unknown]
  - Type 1 diabetes mellitus [Recovered/Resolved]

NARRATIVE: CASE EVENT DATE: 20180313
